FAERS Safety Report 14859403 (Version 1)
Quarter: 2018Q2

REPORT INFORMATION
  Report Type: Spontaneous
  Country: FR (occurrence: FR)
  Receive Date: 20180508
  Receipt Date: 20180508
  Transmission Date: 20180711
  Serious: Yes (Other)
  Sender: FDA-Public Use
  Company Number: FR-AUROBINDO-AUR-APL-2018-005544

PATIENT
  Age: 22 Year
  Sex: Male
  Weight: 85 kg

DRUGS (1)
  1. KETOPROFEN ARROW LP 100 MG SCORED TABLET EXTENDED RELEASE [Suspect]
     Active Substance: KETOPROFEN
     Indication: BACK PAIN
     Dosage: 2 DOSAGE FORM, DAILY
     Route: 048
     Dates: start: 20180116, end: 20180117

REACTIONS (1)
  - Asthmatic crisis [Recovered/Resolved]

NARRATIVE: CASE EVENT DATE: 20180116
